FAERS Safety Report 5978941-3 (Version None)
Quarter: 2008Q4

REPORT INFORMATION
  Report Type: 
  Country: None (occurrence: None)
  Receive Date: 20081204
  Receipt Date: 20080411
  Transmission Date: 20090506
  Serious: No
  Sender: FDA-Public Use
  Company Number: US-ABBOTT-07P-163-0424839-00

PATIENT
  Age: 36 Year
  Sex: Female
  Weight: 97.61 kg

DRUGS (4)
  1. TRICOR [Suspect]
     Indication: HYPERLIPIDAEMIA
     Route: 048
     Dates: start: 20070501, end: 20070813
  2. TRICOR [Suspect]
     Indication: HYPERTRIGLYCERIDAEMIA
  3. ATORVASTATIN CALCIUM [Concomitant]
     Indication: HYPERLIPIDAEMIA
     Route: 048
  4. ATORVASTATIN CALCIUM [Concomitant]
     Indication: HYPERTRIGLYCERIDAEMIA

REACTIONS (1)
  - BLOOD TRIGLYCERIDES INCREASED [None]
